FAERS Safety Report 17143157 (Version 1)
Quarter: 2019Q4

REPORT INFORMATION
  Report Type: Spontaneous
  Country: US (occurrence: US)
  Receive Date: 20191212
  Receipt Date: 20191212
  Transmission Date: 20200122
  Serious: No
  Sender: FDA-Public Use
  Company Number: US-JNJFOC-20191216521

PATIENT
  Age: 78 Year
  Sex: Female
  Weight: 80.18 kg

DRUGS (1)
  1. LEVAQUIN [Suspect]
     Active Substance: LEVOFLOXACIN
     Indication: PRODUCT USED FOR UNKNOWN INDICATION
     Route: 065

REACTIONS (3)
  - Head discomfort [Unknown]
  - Insomnia [Unknown]
  - Swelling [Unknown]

NARRATIVE: CASE EVENT DATE: 20171112
